FAERS Safety Report 15942107 (Version 1)
Quarter: 2019Q1

REPORT INFORMATION
  Report Type: Report from Study
  Country: IT (occurrence: IT)
  Receive Date: 20190210
  Receipt Date: 20190210
  Transmission Date: 20190417
  Serious: Yes (Life-Threatening)
  Sender: FDA-Public Use
  Company Number: IT-ROCHE-2261705

PATIENT
  Age: 82 Year
  Sex: Male

DRUGS (2)
  1. RIVOTRIL [Suspect]
     Active Substance: CLONAZEPAM
     Indication: CONDUCT DISORDER
     Route: 048
     Dates: start: 20181204
  2. MINIAS [Suspect]
     Active Substance: LORMETAZEPAM
     Indication: CONDUCT DISORDER
     Dosage: UNIT DOSE: 10 [DRP]
     Route: 048
     Dates: start: 20181204

REACTIONS (3)
  - Sopor [Recovered/Resolved]
  - Drug abuse [Unknown]
  - Fall [Unknown]

NARRATIVE: CASE EVENT DATE: 20181204
